FAERS Safety Report 15624802 (Version 1)
Quarter: 2018Q4

REPORT INFORMATION
  Report Type: Spontaneous
  Country: GB (occurrence: GB)
  Receive Date: 20181116
  Receipt Date: 20181116
  Transmission Date: 20190205
  Serious: Yes (Hospitalization)
  Sender: FDA-Public Use
  Company Number: PHHY2018GB155101

PATIENT
  Sex: Male

DRUGS (2)
  1. CO-AMOXICLAV [Suspect]
     Active Substance: AMOXICILLIN\CLAVULANATE POTASSIUM
     Indication: PRODUCT USED FOR UNKNOWN INDICATION
     Dosage: UNK
     Route: 065
  2. CO-AMOXICLAV [Suspect]
     Active Substance: AMOXICILLIN\CLAVULANATE POTASSIUM
     Dosage: UNK
     Route: 065

REACTIONS (3)
  - Product quality issue [Recovered/Resolved]
  - Anaphylactic reaction [Recovered/Resolved]
  - Occupational exposure to product [Recovered/Resolved]

NARRATIVE: CASE EVENT DATE: 20181018
